FAERS Safety Report 22665846 (Version 2)
Quarter: 2024Q1

REPORT INFORMATION
  Report Type: Spontaneous
  Country: US (occurrence: US)
  Receive Date: 20230703
  Receipt Date: 20240222
  Transmission Date: 20240410
  Serious: No
  Sender: FDA-Public Use
  Company Number: US-ELI_LILLY_AND_COMPANY-US202306019495

PATIENT
  Age: 46 Year

DRUGS (1)
  1. MOUNJARO [Suspect]
     Active Substance: TIRZEPATIDE
     Indication: Product used for unknown indication
     Dosage: UNK UNK, UNKNOWN
     Route: 065

REACTIONS (5)
  - Abdominal distension [Unknown]
  - Constipation [Unknown]
  - Nausea [Recovering/Resolving]
  - Flatulence [Recovering/Resolving]
  - Dyspepsia [Recovering/Resolving]
